FAERS Safety Report 9663828 (Version 2)
Quarter: 2013Q4

REPORT INFORMATION
  Report Type: Report from Study
  Country: DE (occurrence: DE)
  Receive Date: 20131101
  Receipt Date: 20131101
  Transmission Date: 20140711
  Serious: Yes (Death, Life-Threatening, Hospitalization)
  Sender: FDA-Public Use
  Company Number: DE-ROCHE-1280393

PATIENT
  Age: 69 Year
  Sex: Female
  Weight: 51 kg

DRUGS (4)
  1. BEVACIZUMAB [Suspect]
     Indication: FALLOPIAN TUBE CANCER
     Dosage: LAST DOSE PRIOR TO SAE: 18/SEP/2013
     Route: 042
     Dates: start: 20130715, end: 20131004
  2. CARBOPLATIN [Suspect]
     Indication: FALLOPIAN TUBE CANCER
     Dosage: LAST DOSE PRIOR TO SAE: 18/SEP/2013
     Route: 042
     Dates: start: 20130624
  3. PACLITAXEL [Suspect]
     Indication: FALLOPIAN TUBE CANCER
     Dosage: LAST DOSE PRIOR TO SAE: 18/SEP/2013
     Route: 042
     Dates: start: 20130624
  4. ATACAND [Concomitant]
     Indication: HYPERTENSION
     Route: 048
     Dates: start: 20130819, end: 20130920

REACTIONS (2)
  - Multi-organ failure [Fatal]
  - Ileus [Not Recovered/Not Resolved]
